FAERS Safety Report 15100327 (Version 1)
Quarter: 2018Q3

REPORT INFORMATION
  Report Type: Spontaneous
  Country: US (occurrence: US)
  Receive Date: 20180703
  Receipt Date: 20180703
  Transmission Date: 20181010
  Serious: Yes (Other)
  Sender: FDA-Public Use
  Company Number: US-ALKEM LABORATORIES LIMITED-US-ALKEM-2018-03031

PATIENT
  Age: 42 Year
  Sex: Female

DRUGS (1)
  1. AMLODIPINE BESYLATE. [Suspect]
     Active Substance: AMLODIPINE BESYLATE
     Indication: PRODUCT USED FOR UNKNOWN INDICATION
     Dosage: 50?100 MG
     Route: 065

REACTIONS (5)
  - Toxicity to various agents [Unknown]
  - Tachycardia [Unknown]
  - Overdose [Unknown]
  - Pulmonary oedema [Unknown]
  - Hypotension [Unknown]
